FAERS Safety Report 10249474 (Version 5)
Quarter: 2015Q2

REPORT INFORMATION
  Report Type: Spontaneous
  Country: US (occurrence: US)
  Receive Date: 20140620
  Receipt Date: 20150619
  Transmission Date: 20150821
  Serious: Yes (Death, Hospitalization, Disabling, Other)
  Sender: FDA-Public Use
  Company Number: US-MERCK-1406USA009656

PATIENT
  Sex: Male
  Weight: 116.1 kg

DRUGS (3)
  1. JANUVIA [Suspect]
     Active Substance: SITAGLIPTIN PHOSPHATE
     Indication: TYPE 2 DIABETES MELLITUS
     Dosage: 100 MG, DAILY
     Route: 048
     Dates: start: 20120511, end: 20130116
  2. BYETTA [Suspect]
     Active Substance: EXENATIDE
     Indication: TYPE 2 DIABETES MELLITUS
     Dosage: 5 MICROGRAM, BID
     Dates: start: 20111201, end: 20120808
  3. VICTOZA [Suspect]
     Active Substance: LIRAGLUTIDE
     Indication: TYPE 2 DIABETES MELLITUS
     Dosage: 18 MICROGRAM, QD
     Dates: start: 20100922, end: 20120808

REACTIONS (29)
  - Coronary artery disease [Unknown]
  - Blood glucose increased [Unknown]
  - Gingivitis [Unknown]
  - Stent placement [Unknown]
  - Osteoarthritis [Unknown]
  - Adenocarcinoma pancreas [Fatal]
  - Liver abscess [Fatal]
  - Hepatic lesion [Unknown]
  - Stent malfunction [Unknown]
  - Biliary dilatation [Unknown]
  - Coronary arterial stent insertion [Unknown]
  - Coronary angioplasty [Unknown]
  - Abdominal pain upper [Unknown]
  - Diabetic ketoacidosis [Recovered/Resolved]
  - Metabolic encephalopathy [Unknown]
  - Cholangitis [Unknown]
  - Pleural effusion [Unknown]
  - Hyperlipidaemia [Unknown]
  - Stent placement [Unknown]
  - Ascites [Unknown]
  - Deep vein thrombosis [Unknown]
  - Stent placement [Unknown]
  - Coagulopathy [Unknown]
  - Stent placement [Unknown]
  - Dilatation intrahepatic duct acquired [Unknown]
  - Pneumobilia [Unknown]
  - Pancreatic stent placement [Unknown]
  - Klebsiella bacteraemia [Fatal]
  - Pancreatitis [Unknown]

NARRATIVE: CASE EVENT DATE: 201209
